FAERS Safety Report 18963083 (Version 4)
Quarter: 2024Q1

REPORT INFORMATION
  Report Type: Report from Study
  Country: BR (occurrence: BR)
  Receive Date: 20210303
  Receipt Date: 20240219
  Transmission Date: 20240409
  Serious: No
  Sender: FDA-Public Use
  Company Number: BR-TAKEDA-2021TUS012161

PATIENT
  Age: 44 Year
  Sex: Male
  Weight: 81 kg

DRUGS (21)
  1. HEMO-8R [Suspect]
     Active Substance: ANTIHEMOPHILIC FACTOR, HUMAN RECOMBINANT
     Indication: Factor VIII deficiency
     Dosage: UNK
     Route: 042
     Dates: start: 20160328
  2. DIPROSPAN [Concomitant]
     Active Substance: BETAMETHASONE DIPROPIONATE\BETAMETHASONE SODIUM PHOSPHATE
     Indication: Pain
     Dosage: 7 MILLIGRAM, QD
     Route: 065
     Dates: start: 20161024, end: 20161026
  3. IBUPROFEN [Concomitant]
     Active Substance: IBUPROFEN
     Indication: Headache
     Dosage: 600 MILLIGRAM, PRN
     Route: 065
     Dates: start: 20160406, end: 20160406
  4. IBUPROFEN [Concomitant]
     Active Substance: IBUPROFEN
     Indication: Vomiting
  5. IBUPROFEN [Concomitant]
     Active Substance: IBUPROFEN
     Indication: Arthralgia
     Dosage: 600 MILLIGRAM, QD
     Dates: start: 20160705, end: 20160705
  6. IBUPROFEN [Concomitant]
     Active Substance: IBUPROFEN
     Dosage: 600 MILLIGRAM, QD
     Route: 065
     Dates: start: 20160902, end: 20160905
  7. MELOXICAM [Concomitant]
     Active Substance: MELOXICAM
     Indication: Arthralgia
     Dosage: 15 MILLIGRAM, QD
     Dates: start: 20160727, end: 20160728
  8. NIMESULIDE [Concomitant]
     Active Substance: NIMESULIDE
     Indication: Contusion
     Dosage: 100 MILLIGRAM, QD
     Route: 065
     Dates: start: 20160810, end: 20160816
  9. NIMESULIDE [Concomitant]
     Active Substance: NIMESULIDE
     Indication: Arthralgia
     Dosage: 100 MILLIGRAM, QD
     Route: 065
     Dates: start: 20170226, end: 20170227
  10. NIMESULIDE [Concomitant]
     Active Substance: NIMESULIDE
     Dosage: 100 MILLIGRAM, QD
     Route: 065
     Dates: start: 20160721, end: 20160721
  11. NIMESULIDE [Concomitant]
     Active Substance: NIMESULIDE
     Dosage: 100 MILLIGRAM, QD
     Route: 065
     Dates: start: 20160623, end: 20160623
  12. NUMESULIDA [Concomitant]
     Indication: Contusion
     Dosage: 100 MILLIGRAM, QD
     Dates: start: 20161101, end: 20161102
  13. ACETAMINOPHEN [Concomitant]
     Active Substance: ACETAMINOPHEN
     Indication: Contusion
     Dosage: 750 MILLIGRAM, QD
     Route: 065
     Dates: start: 20160826, end: 20160826
  14. ACETAMINOPHEN [Concomitant]
     Active Substance: ACETAMINOPHEN
     Indication: Pain
     Dosage: 750 MILLIGRAM, QD
     Route: 065
     Dates: start: 20161107, end: 20161108
  15. ACETAMINOPHEN [Concomitant]
     Active Substance: ACETAMINOPHEN
     Indication: Arthralgia
     Dosage: 750 MILLIGRAM, QD
     Route: 065
     Dates: start: 20160920, end: 20160921
  16. ACETAMINOPHEN [Concomitant]
     Active Substance: ACETAMINOPHEN
     Indication: Joint injection
     Dosage: 750 MILLIGRAM, BID
     Route: 065
     Dates: start: 20161024, end: 20161024
  17. ACETAMINOPHEN [Concomitant]
     Active Substance: ACETAMINOPHEN
     Indication: Ankle arthroplasty
     Dosage: 500 MILLIGRAM, QID
     Route: 065
     Dates: start: 20210612, end: 20210613
  18. METAMIZOLE SODIUM [Concomitant]
     Active Substance: METAMIZOLE SODIUM
     Indication: Ankle arthroplasty
     Dosage: 1000 MILLIGRAM, QID
     Route: 065
     Dates: start: 20210612, end: 20210616
  19. BROMAZEPAM [Concomitant]
     Active Substance: BROMAZEPAM
     Indication: Ankle arthroplasty
     Dosage: 3 MILLIGRAM, QD
     Route: 065
     Dates: start: 20210612, end: 20210616
  20. DEXAMETHASONE [Concomitant]
     Active Substance: DEXAMETHASONE
     Indication: Ankle arthroplasty
     Dosage: 100 MILLIGRAM, QD
     Route: 065
     Dates: start: 20210612, end: 20210614
  21. CEPHALOTHIN [Concomitant]
     Active Substance: CEPHALOTHIN
     Indication: Ankle arthroplasty
     Dosage: 1000 MILLIGRAM, QID
     Route: 065
     Dates: start: 20210612, end: 20210616

REACTIONS (1)
  - Knee arthroplasty [Recovered/Resolved]

NARRATIVE: CASE EVENT DATE: 20201130
